FAERS Safety Report 17313932 (Version 3)
Quarter: 2020Q3

REPORT INFORMATION
  Report Type: Spontaneous
  Country: US (occurrence: US)
  Receive Date: 20200124
  Receipt Date: 20200715
  Transmission Date: 20201102
  Serious: Yes (Life-Threatening, Hospitalization, Other)
  Sender: FDA-Public Use
  Company Number: US-AUROBINDO-AUR-APL-2020-003174

PATIENT
  Age: 3 Year
  Sex: Male

DRUGS (1)
  1. AMOXICILLIN. [Suspect]
     Active Substance: AMOXICILLIN
     Indication: PHARYNGITIS STREPTOCOCCAL
     Dosage: 1 DOSAGE FORM, 1 TOTAL
     Route: 065

REACTIONS (12)
  - Subcutaneous emphysema [Recovering/Resolving]
  - Emphysema [Recovering/Resolving]
  - Pulmonary interstitial emphysema syndrome [Recovering/Resolving]
  - Respiratory distress [Recovering/Resolving]
  - Pneumopericardium [Recovering/Resolving]
  - Anaphylactic reaction [Recovering/Resolving]
  - Periorbital swelling [Recovering/Resolving]
  - Pneumomediastinum [Recovering/Resolving]
  - Face oedema [Recovering/Resolving]
  - Localised oedema [Recovering/Resolving]
  - Rash maculo-papular [Recovering/Resolving]
  - Pneumothorax [Recovering/Resolving]
